FAERS Safety Report 8406793-0 (Version None)
Quarter: 2012Q2

REPORT INFORMATION
  Report Type: 
  Country: None (occurrence: None)
  Receive Date: 20120604
  Receipt Date: 20120530
  Transmission Date: 20120825
  Serious: Yes (Other)
  Sender: FDA-Public Use
  Company Number: US-PFIZER INC-2012130688

PATIENT
  Sex: Female

DRUGS (1)
  1. XANAX [Suspect]
     Dosage: UNK

REACTIONS (6)
  - NEURALGIA [None]
  - SPINAL FRACTURE [None]
  - POST-TRAUMATIC STRESS DISORDER [None]
  - NERVE INJURY [None]
  - NEUROPATHY PERIPHERAL [None]
  - PAIN [None]
